FAERS Safety Report 18218885 (Version 1)
Quarter: 2020Q3

REPORT INFORMATION
  Report Type: Spontaneous
  Country: US (occurrence: US)
  Receive Date: 20200901
  Receipt Date: 20200901
  Transmission Date: 20201103
  Serious: No
  Sender: FDA-Public Use
  Company Number: None

PATIENT
  Sex: Female
  Weight: 110.4 kg

DRUGS (1)
  1. TOPOTECAN [Suspect]
     Active Substance: TOPOTECAN HYDROCHLORIDE
     Dates: end: 20200821

REACTIONS (6)
  - Intertrigo [None]
  - White blood cell count decreased [None]
  - Neutrophil count decreased [None]
  - Lymphocyte count decreased [None]
  - Vertigo [None]
  - Dizziness postural [None]

NARRATIVE: CASE EVENT DATE: 20200825
